FAERS Safety Report 24328541 (Version 1)
Quarter: 2024Q3

REPORT INFORMATION
  Report Type: Spontaneous
  Country: US (occurrence: US)
  Receive Date: 20240917
  Receipt Date: 20240917
  Transmission Date: 20241017
  Serious: No
  Sender: BAYER
  Company Number: US-BAYER-2024A131100

PATIENT

DRUGS (1)
  1. CIPROFLOXACIN [Suspect]
     Active Substance: CIPROFLOXACIN
     Dosage: UNK
     Dates: end: 20240903

REACTIONS (3)
  - Tendon pain [Recovering/Resolving]
  - Gait inability [Not Recovered/Not Resolved]
  - Foot deformity [None]
